FAERS Safety Report 15922159 (Version 1)
Quarter: 2019Q1

REPORT INFORMATION
  Report Type: Spontaneous
  Country: US (occurrence: US)
  Receive Date: 20190205
  Receipt Date: 20190205
  Transmission Date: 20190417
  Serious: No
  Sender: FDA-Public Use
  Company Number: None

PATIENT
  Sex: Female

DRUGS (1)
  1. MOMETASONE FUROATE NS SPR17GM 50MCG [Suspect]
     Active Substance: MOMETASONE FUROATE

REACTIONS (1)
  - Headache [None]
